FAERS Safety Report 5021617-X (Version None)
Quarter: 2006Q2

REPORT INFORMATION
  Report Type: 
  Country: None (occurrence: None)
  Receive Date: 20060605
  Receipt Date: 20060519
  Transmission Date: 20061013
  Serious: Yes (Other)
  Sender: FDA-Public Use
  Company Number: US200605004466

PATIENT
  Age: 55 Year
  Sex: Female

DRUGS (3)
  1. CYMBALTA [Suspect]
     Dates: end: 20060101
  2. ULTRACET [Concomitant]
  3. SONATA [Concomitant]

REACTIONS (1)
  - PANCREATITIS [None]
